FAERS Safety Report 14073750 (Version 1)
Quarter: 2017Q4

REPORT INFORMATION
  Report Type: Spontaneous
  Country: US (occurrence: US)
  Receive Date: 20171010
  Receipt Date: 20171010
  Transmission Date: 20180321
  Serious: No
  Sender: FDA-Public Use
  Company Number: US-JNJFOC-20170906781

PATIENT
  Age: 90 Year
  Sex: Female
  Weight: 58.97 kg

DRUGS (6)
  1. TYLENOL EXTRA STRENGTH [Suspect]
     Active Substance: ACETAMINOPHEN
     Indication: BACK PAIN
     Dosage: 1-2 CAPLETS; 3-4 TIMES A DAY
     Route: 048
     Dates: end: 20170906
  2. ELIQUIS [Concomitant]
     Active Substance: APIXABAN
     Indication: ANTICOAGULANT THERAPY
     Route: 065
  3. MULTAQ [Concomitant]
     Active Substance: DRONEDARONE
     Indication: CARDIAC DISORDER
     Route: 065
  4. TYLENOL EXTRA STRENGTH [Suspect]
     Active Substance: ACETAMINOPHEN
     Indication: MUSCULOSKELETAL PAIN
     Dosage: 1-2 CAPLETS; 3-4 TIMES A DAY
     Route: 048
     Dates: end: 20170906
  5. LABETALOL [Concomitant]
     Active Substance: LABETALOL\LABETALOL HYDROCHLORIDE
     Indication: HYPERTENSION
     Route: 065
  6. VALSARTAN. [Concomitant]
     Active Substance: VALSARTAN
     Indication: HYPERTENSION
     Route: 065

REACTIONS (3)
  - Incorrect dose administered [Unknown]
  - Eczema [Not Recovered/Not Resolved]
  - Inappropriate schedule of drug administration [Unknown]
